FAERS Safety Report 8908289 (Version 2)
Quarter: 2012Q4

REPORT INFORMATION
  Report Type: 
  Country: US (occurrence: US)
  Receive Date: 20121114
  Receipt Date: 20121203
  Transmission Date: 20130627
  Serious: Yes (Hospitalization)
  Sender: FDA-Public Use
  Company Number: US-JNJFOC-20121103563

PATIENT
  Age: 82 None
  Sex: Male

DRUGS (11)
  1. XARELTO [Suspect]
     Indication: CEREBROVASCULAR ACCIDENT PROPHYLAXIS
     Route: 048
     Dates: start: 201208, end: 20121029
  2. XARELTO [Suspect]
     Indication: ATRIAL FIBRILLATION
     Route: 048
     Dates: start: 201208, end: 20121029
  3. METFORMIN [Concomitant]
  4. LIPITOR [Concomitant]
  5. METOPROLOL [Concomitant]
  6. FOLIC ACID [Concomitant]
     Dosage: dose is 800 mcg daily
  7. ASPIRIN [Concomitant]
  8. MVI [Concomitant]
  9. LASIX [Concomitant]
  10. RAMIPRIL [Concomitant]
  11. NSAID [Concomitant]

REACTIONS (3)
  - Gastric ulcer haemorrhage [Unknown]
  - Arthralgia [Unknown]
  - Hospitalisation [Unknown]
